FAERS Safety Report 6005906-8 (Version None)
Quarter: 2008Q4

REPORT INFORMATION
  Report Type: 
  Country: None (occurrence: None)
  Receive Date: 20081216
  Receipt Date: 20081216
  Transmission Date: 20090506
  Serious: Yes (Life-Threatening)
  Sender: FDA-Public Use
  Company Number: None

PATIENT
  Sex: Female
  Weight: 84.8226 kg

DRUGS (1)
  1. HFA ALBUTEROL INHALER ALL ALL [Suspect]
     Indication: ASTHMA
     Dosage: ANY ONCE OROPHARINGEAL
     Route: 049

REACTIONS (1)
  - NO ADVERSE EVENT [None]
